FAERS Safety Report 15612966 (Version 3)
Quarter: 2018Q4

REPORT INFORMATION
  Report Type: Spontaneous
  Country: GR (occurrence: GR)
  Receive Date: 20181113
  Receipt Date: 20181220
  Transmission Date: 20190205
  Serious: Yes (Other)
  Sender: FDA-Public Use
  Company Number: GR-PFIZER INC-2018462251

PATIENT
  Age: 62 Year
  Sex: Male

DRUGS (6)
  1. FUROSEMIDE. [Suspect]
     Active Substance: FUROSEMIDE
     Dosage: 20 MG, UNK
  2. ASPIRINE [Suspect]
     Active Substance: ASPIRIN
     Dosage: 100 MG, UNK
  3. EPLERENONE. [Suspect]
     Active Substance: EPLERENONE
     Dosage: 50 MG, UNK
  4. ATORVASTATIN CALCIUM. [Suspect]
     Active Substance: ATORVASTATIN CALCIUM
     Dosage: 20 MG, UNK
  5. SACUBITRIL VALSARTAN SODIUM HYDRATE [Suspect]
     Active Substance: SACUBITRIL\VALSARTAN
     Dosage: 103/97
  6. BISOPROLOL [Suspect]
     Active Substance: BISOPROLOL
     Dosage: 5 MG, UNK

REACTIONS (4)
  - Pulmonary arterial pressure increased [Unknown]
  - Oedema [Unknown]
  - Jugular vein distension [Unknown]
  - Dyspnoea [Unknown]
